FAERS Safety Report 14184813 (Version 1)
Quarter: 2017Q4

REPORT INFORMATION
  Report Type: Spontaneous
  Country: US (occurrence: US)
  Receive Date: 20171113
  Receipt Date: 20171113
  Transmission Date: 20180321
  Serious: No
  Sender: FDA-Public Use
  Company Number: US-BAUSCH-BL-2017-014539

PATIENT
  Age: 58 Year
  Sex: Female

DRUGS (3)
  1. ALAWAY [Suspect]
     Active Substance: KETOTIFEN FUMARATE
     Indication: EYE PRURITUS
     Dosage: INSTILLED 1 DROP INTO BOTH EYES
     Route: 047
     Dates: start: 20170501, end: 20170507
  2. BACITRACIN-POLYMYXIN [Concomitant]
     Indication: SUPERFICIAL INJURY OF EYE
     Route: 047
     Dates: start: 20170416, end: 20170508
  3. ALAWAY [Suspect]
     Active Substance: KETOTIFEN FUMARATE
     Dosage: INSTILLING 1 DROP ONLY IN THE RIGHT EYE
     Route: 047
     Dates: start: 201705, end: 20170509

REACTIONS (3)
  - Drug ineffective [Unknown]
  - Condition aggravated [Recovered/Resolved]
  - Eye pruritus [Recovered/Resolved]

NARRATIVE: CASE EVENT DATE: 201705
